FAERS Safety Report 8382119-6 (Version None)
Quarter: 2012Q2

REPORT INFORMATION
  Report Type: 
  Country: None (occurrence: None)
  Receive Date: 20120524
  Receipt Date: 20120521
  Transmission Date: 20120825
  Serious: Yes (Other)
  Sender: FDA-Public Use
  Company Number: BR-PFIZER INC-2012123530

PATIENT
  Age: 86 Year
  Sex: Female
  Weight: 67 kg

DRUGS (9)
  1. SERMION [Concomitant]
     Indication: DEMENTIA ALZHEIMER'S TYPE
     Dosage: STRENGTH 30MG, UNK
  2. SIMVASTATIN [Concomitant]
     Indication: HYPERTENSION
     Dosage: UNK
  3. METOCLOPRAMIDE HYDROCHLORIDE [Concomitant]
     Indication: NAUSEA
     Dosage: UNK
  4. ALPRAZOLAM [Suspect]
     Dosage: 1 MG (ONE TABLET), 1X/DAY
     Route: 048
     Dates: start: 20110101
  5. DONEPEZIL HYDROCHLORIDE [Concomitant]
     Indication: DEMENTIA ALZHEIMER'S TYPE
     Dosage: 10 MG, 1X/DAY
     Dates: start: 20060101
  6. DRAMIN [Concomitant]
     Indication: NAUSEA
     Dosage: UNK
  7. PHENERGAN [Concomitant]
     Indication: HYPERSENSITIVITY
     Dosage: UNK
  8. ALPRAZOLAM [Suspect]
     Dosage: 2MG, UNK
     Route: 048
  9. MEMANTINE HYDROCHLORIDE [Concomitant]
     Indication: DEMENTIA ALZHEIMER'S TYPE
     Dosage: UNK

REACTIONS (4)
  - DYSENTERY [None]
  - SPINAL PAIN [None]
  - DRUG INEFFECTIVE [None]
  - ARTHRALGIA [None]
